FAERS Safety Report 15857457 (Version 1)
Quarter: 2019Q1

REPORT INFORMATION
  Report Type: Spontaneous
  Country: US (occurrence: US)
  Receive Date: 20190123
  Receipt Date: 20190123
  Transmission Date: 20190417
  Serious: No
  Sender: FDA-Public Use
  Company Number: US-ORPHAN EUROPE-2061611

PATIENT
  Age: 23 Year
  Sex: Male
  Weight: 58.96 kg

DRUGS (17)
  1. CYSTADANE [Suspect]
     Active Substance: BETAINE
     Indication: HOMOCYSTINURIA
     Route: 048
  2. COGENTIN [Concomitant]
     Active Substance: BENZTROPINE MESYLATE
  3. GEODON [Concomitant]
     Active Substance: ZIPRASIDONE HYDROCHLORIDE\ZIPRASIDONE MESYLATE
     Route: 048
  4. FOLIC ACID. [Concomitant]
     Active Substance: FOLIC ACID
  5. L-CARNITINE [Concomitant]
     Active Substance: LEVOCARNITINE
  6. LINZESS [Concomitant]
     Active Substance: LINACLOTIDE
  7. PRILOSEC [Concomitant]
     Active Substance: OMEPRAZOLE MAGNESIUM
  8. COLACE [Concomitant]
     Active Substance: DOCUSATE SODIUM
  9. RIBOFLAVIN [Concomitant]
     Active Substance: RIBOFLAVIN
  10. SEROQUEL [Concomitant]
     Active Substance: QUETIAPINE FUMARATE
  11. VITAMIN B-6 [Concomitant]
     Active Substance: PYRIDOXINE
  12. KLONOPIN [Concomitant]
     Active Substance: CLONAZEPAM
  13. ASPIRIN. [Concomitant]
     Active Substance: ASPIRIN
  14. EQUETRO [Concomitant]
     Active Substance: CARBAMAZEPINE
  15. LAMICTAL [Concomitant]
     Active Substance: LAMOTRIGINE
  16. SEROQUEL [Concomitant]
     Active Substance: QUETIAPINE FUMARATE
  17. SEROQUEL [Concomitant]
     Active Substance: QUETIAPINE FUMARATE

REACTIONS (2)
  - Nausea [Not Recovered/Not Resolved]
  - Vomiting [Not Recovered/Not Resolved]

NARRATIVE: CASE EVENT DATE: 201805
